FAERS Safety Report 7590592-6 (Version None)
Quarter: 2011Q3

REPORT INFORMATION
  Report Type: 
  Country: None (occurrence: None)
  Receive Date: 20110705
  Receipt Date: 20110628
  Transmission Date: 20111222
  Serious: Yes (Death)
  Sender: FDA-Public Use
  Company Number: US-PFIZER INC-2011119848

PATIENT
  Sex: Female

DRUGS (1)
  1. REVATIO [Suspect]
     Indication: PULMONARY HYPERTENSION
     Dosage: 20 MG, 3X/DAY

REACTIONS (4)
  - PULMONARY ARTERIAL HYPERTENSION [None]
  - CHRONIC RESPIRATORY FAILURE [None]
  - ACUTE RESPIRATORY FAILURE [None]
  - PNEUMONIA ASPIRATION [None]
